FAERS Safety Report 8062415 (Version 2)
Quarter: 2012Q4

REPORT INFORMATION
  Report Type: 
  Country: FR (occurrence: FR)
  Receive Date: 20110801
  Receipt Date: 20120909
  Transmission Date: 20130627
  Serious: Yes (Hospitalization, Other)
  Sender: FDA-Public Use
  Company Number: FR-BRISTOL-MYERS SQUIBB COMPANY-15928799

PATIENT
  Age: 68 Year
  Sex: Male

DRUGS (8)
  1. COAPROVEL TABS 150MG/12.5MG [Suspect]
     Dosage: 1Df= 1Tab
     Route: 048
     Dates: start: 2007, end: 20110612
  2. TAHOR [Suspect]
     Dosage: 1Df= 1Tab  Tahor80 mg
     Route: 048
     Dates: start: 2007, end: 20110612
  3. KARDEGIC [Concomitant]
     Dosage: Kardegic 75 mg oral powder
     Route: 048
     Dates: start: 2007
  4. PLAVIX TABS [Concomitant]
     Route: 048
     Dates: start: 2007, end: 20110610
  5. AMLOR [Concomitant]
     Dosage: Amlor 10 mg (amlodipine) 20 mg daily orally from 2007 to 14-Jun-2011,1DF- 10 mg - 20 mg
     Route: 048
     Dates: start: 2007, end: 20110614
  6. XATRAL LP [Concomitant]
  7. ALFUZOSIN [Concomitant]
     Dosage: ER capsule (alfuzosin) daily to 14-Jun-2011
     Dates: end: 20110614
  8. INEXIUM [Concomitant]
     Dosage: Inexium 20 mg enteric-coated tablet (esomeprazole)
     Route: 048
     Dates: start: 2007

REACTIONS (5)
  - Rhabdomyolysis [Recovered/Resolved]
  - Renal failure [Recovered/Resolved]
  - Jaundice cholestatic [Recovered/Resolved]
  - Pancreatic carcinoma [Recovered/Resolved]
  - Benign prostatic hyperplasia [Recovered/Resolved]
